FAERS Safety Report 15464017 (Version 2)
Quarter: 2019Q1

REPORT INFORMATION
  Report Type: Report from Study
  Country: US (occurrence: US)
  Receive Date: 20181004
  Receipt Date: 20190219
  Transmission Date: 20190417
  Serious: Yes (Other)
  Sender: FDA-Public Use
  Company Number: US-JNJFOC-20180710702

PATIENT
  Sex: Male

DRUGS (2)
  1. IMBRUVICA [Suspect]
     Active Substance: IBRUTINIB
     Indication: MANTLE CELL LYMPHOMA
     Route: 048
     Dates: start: 20180428, end: 20190206
  2. IMBRUVICA [Suspect]
     Active Substance: IBRUTINIB
     Indication: MANTLE CELL LYMPHOMA
     Route: 048
     Dates: start: 20160801, end: 20180427

REACTIONS (4)
  - White blood cell count increased [Unknown]
  - Splenomegaly [Not Recovered/Not Resolved]
  - Drug effect increased [Unknown]
  - Malignant melanoma [Recovering/Resolving]

NARRATIVE: CASE EVENT DATE: 2018
